FAERS Safety Report 5011611-7 (Version None)
Quarter: 2006Q2

REPORT INFORMATION
  Report Type: 
  Country: None (occurrence: None)
  Receive Date: 20060404
  Receipt Date: 20060118
  Transmission Date: 20061013
  Serious: No
  Sender: FDA-Public Use
  Company Number: US200601003135

PATIENT
  Age: 65 Year
  Sex: Female

DRUGS (2)
  1. CYMBALTA [Suspect]
     Indication: PAIN
     Dosage: 60 MG, EACH EVENING
     Dates: start: 20050101
  2. INSULIN [Concomitant]

REACTIONS (2)
  - FOOD CRAVING [None]
  - INCREASED APPETITE [None]
